FAERS Safety Report 24641836 (Version 1)
Quarter: 2024Q4

REPORT INFORMATION
  Report Type: Spontaneous
  Country: HU (occurrence: HU)
  Receive Date: 20241120
  Receipt Date: 20241120
  Transmission Date: 20250115
  Serious: Yes (Other)
  Sender: ABBVIE
  Company Number: HU-JNJFOC-20241113137

PATIENT
  Age: 65 Year
  Sex: Male

DRUGS (7)
  1. PREDNISOLONE [Suspect]
     Active Substance: PREDNISOLONE
     Indication: Product used for unknown indication
     Route: 065
  2. LENALIDOMIDE [Suspect]
     Active Substance: LENALIDOMIDE
     Indication: Plasma cell myeloma refractory
     Route: 065
     Dates: start: 202208
  3. LENALIDOMIDE [Suspect]
     Active Substance: LENALIDOMIDE
     Indication: Plasma cell myeloma refractory
     Route: 065
  4. DARZALEX [Suspect]
     Active Substance: DARATUMUMAB
     Indication: Plasma cell myeloma refractory
     Route: 065
  5. DARZALEX [Suspect]
     Active Substance: DARATUMUMAB
     Indication: Plasma cell myeloma refractory
     Route: 065
     Dates: start: 202208
  6. DEXAMETHASONE [Suspect]
     Active Substance: DEXAMETHASONE
     Indication: Plasma cell myeloma refractory
     Route: 065
     Dates: start: 202208
  7. DEXAMETHASONE [Suspect]
     Active Substance: DEXAMETHASONE
     Indication: Plasma cell myeloma refractory
     Route: 065

REACTIONS (5)
  - Autologous haematopoietic stem cell transplant [Unknown]
  - Gastrointestinal inflammation [Unknown]
  - Cytomegalovirus infection reactivation [Unknown]
  - Febrile neutropenia [Unknown]
  - Infection [Unknown]

NARRATIVE: CASE EVENT DATE: 20230925
